FAERS Safety Report 18148432 (Version 3)
Quarter: 2020Q3

REPORT INFORMATION
  Report Type: Spontaneous
  Country: IT (occurrence: IT)
  Receive Date: 20200814
  Receipt Date: 20200909
  Transmission Date: 20201103
  Serious: Yes (Hospitalization, Other)
  Sender: FDA-Public Use
  Company Number: IT-AUROBINDO-AUR-APL-2020-037585

PATIENT
  Age: 10 Year
  Sex: Female
  Weight: 23 kg

DRUGS (27)
  1. ARIPIPRAZOLE. [Suspect]
     Active Substance: ARIPIPRAZOLE
     Indication: DEPRESSION
  2. MELATONIN [Suspect]
     Active Substance: MELATONIN
     Indication: SLEEP DISORDER
     Dosage: 0.05 MILLIGRAM/KILOGRAM, DAILY
     Route: 065
  3. CHLORPHENAMINE [Suspect]
     Active Substance: CHLORPHENIRAMINE MALEATE
     Indication: PRURITUS
     Dosage: 0.2 MILLIGRAM/KILOGRAM, ONCE A DAY
     Route: 065
  4. ARIPIPRAZOLE. [Suspect]
     Active Substance: ARIPIPRAZOLE
     Indication: SLEEP DISORDER
     Dosage: 0.3 MILLIGRAM/KILOGRAM, ONCE A DAY
     Route: 065
  5. CETIRIZINE [Suspect]
     Active Substance: CETIRIZINE HYDROCHLORIDE
     Indication: PRURITUS
     Dosage: 1 MILLIGRAM/KILOGRAM, ONCE A DAY
     Route: 065
  6. NIAPRAZINE [Suspect]
     Active Substance: NIAPRAZINE
     Dosage: 1 MILLIGRAM/KILOGRAM, ONCE A DAY
     Route: 065
  7. METAMIZOLE [Suspect]
     Active Substance: METAMIZOLE
     Indication: PAIN
     Dosage: 20 MILLIGRAM/KILOGRAM, ONCE A DAY
     Route: 065
  8. TRAMADOL. [Suspect]
     Active Substance: TRAMADOL
     Indication: PAIN
     Dosage: 6 MILLIGRAM/KILOGRAM, ONCE A DAY
     Route: 065
  9. TRAZODONE [Suspect]
     Active Substance: TRAZODONE HYDROCHLORIDE
     Indication: SLEEP DISORDER
  10. ARIPIPRAZOLE. [Suspect]
     Active Substance: ARIPIPRAZOLE
     Indication: ANXIETY
  11. ALPRAZOLAM. [Suspect]
     Active Substance: ALPRAZOLAM
     Indication: ANXIETY
     Dosage: 0.01 MILLIGRAM/KILOGRAM, ONCE A DAY
     Route: 065
  12. DIAZEPAM. [Suspect]
     Active Substance: DIAZEPAM
     Indication: SLEEP DISORDER
     Dosage: 0.1 MILLIGRAM/KILOGRAM, DAILY
     Route: 065
  13. GABAPENTIN. [Suspect]
     Active Substance: GABAPENTIN
     Indication: PAIN
     Dosage: 25 MILLIGRAM/KILOGRAM, ONCE A DAY
     Route: 065
  14. ACETAMINOPHEN. [Suspect]
     Active Substance: ACETAMINOPHEN
     Indication: PAIN
     Dosage: UNK
     Route: 065
  15. CHLORPHENAMINE [Suspect]
     Active Substance: CHLORPHENIRAMINE MALEATE
     Dosage: 0.2 MILLIGRAM/KILOGRAM, ONCE A DAY
     Route: 065
  16. METAMIZOLE [Suspect]
     Active Substance: METAMIZOLE
     Dosage: 20 MILLIGRAM/KILOGRAM, ONCE A DAY
     Route: 065
  17. TRAMADOL. [Suspect]
     Active Substance: TRAMADOL
     Dosage: 5 MILLIGRAM/KILOGRAM, ONCE A DAY
     Route: 065
  18. TRAZODONE [Suspect]
     Active Substance: TRAZODONE HYDROCHLORIDE
     Indication: ANXIETY
     Dosage: 1 MILLIGRAM/KILOGRAM, ONCE A DAY
     Route: 065
  19. KETAMINE [Concomitant]
     Active Substance: KETAMINE
     Indication: SEDATION
     Dosage: 3.5 MILLIGRAM/KILOGRAM, ONCE A DAY
     Route: 065
  20. GABAPENTIN. [Suspect]
     Active Substance: GABAPENTIN
     Dosage: 25 MILLIGRAM/KILOGRAM, ONCE A DAY
     Route: 065
  21. TRAZODONE [Suspect]
     Active Substance: TRAZODONE HYDROCHLORIDE
     Indication: DEPRESSION
  22. ALPRAZOLAM. [Suspect]
     Active Substance: ALPRAZOLAM
     Indication: DEPRESSION
  23. NIAPRAZINE [Suspect]
     Active Substance: NIAPRAZINE
     Indication: SLEEP DISORDER
     Dosage: 1 MILLIGRAM/KILOGRAM, ONCE A DAY
     Route: 065
  24. ALPRAZOLAM. [Suspect]
     Active Substance: ALPRAZOLAM
     Indication: SLEEP DISORDER
     Dosage: 0.01 MILLIGRAM/KILOGRAM, ONCE A DAY
     Route: 065
  25. IBUPROFEN. [Suspect]
     Active Substance: IBUPROFEN
     Indication: PAIN
     Dosage: UNK
     Route: 065
  26. DEXMEDETOMIDINE. [Suspect]
     Active Substance: DEXMEDETOMIDINE
     Indication: SLEEP DISORDER
     Dosage: 3 MICROGRAM/KILOGRAM, DAILY
     Route: 045
  27. PROPOFOL. [Concomitant]
     Active Substance: PROPOFOL
     Indication: SEDATION
     Dosage: 5 MILLIGRAM/KILOGRAM, ONCE A DAY (3 TIMES)
     Route: 065

REACTIONS (10)
  - Paradoxical insomnia [Recovering/Resolving]
  - Agitation [Recovering/Resolving]
  - Paradoxical drug reaction [Unknown]
  - Fatigue [Unknown]
  - Off label use [Unknown]
  - Drug ineffective [Unknown]
  - Quality of life decreased [Unknown]
  - Sleep disorder [Recovering/Resolving]
  - Irritability [Unknown]
  - Confusional arousal [Unknown]
